FAERS Safety Report 9824699 (Version 1)
Quarter: 2014Q1

REPORT INFORMATION
  Report Type: Report from Study
  Country: US (occurrence: US)
  Receive Date: 20140117
  Receipt Date: 20140117
  Transmission Date: 20141002
  Serious: Yes (Other)
  Sender: FDA-Public Use
  Company Number: US-ROCHE-1329131

PATIENT
  Sex: Male
  Weight: 72.64 kg

DRUGS (16)
  1. LUCENTIS [Suspect]
     Indication: AGE-RELATED MACULAR DEGENERATION
     Route: 050
     Dates: start: 20091221
  2. LUCENTIS [Suspect]
     Dosage: 0.05 ML OF 10MG/ML
     Route: 050
  3. AVASTIN [Suspect]
     Indication: AGE-RELATED MACULAR DEGENERATION
     Route: 065
     Dates: start: 20091012
  4. ZYMAR [Concomitant]
     Dosage: 1 DROP, OU
     Route: 047
  5. PHENYLEPHRINE [Concomitant]
     Dosage: OU
     Route: 065
  6. TROPICAMIDE [Concomitant]
     Dosage: OU
     Route: 065
  7. PROPARACAINE [Concomitant]
     Dosage: OU
     Route: 065
  8. QUIXIN [Concomitant]
     Dosage: 1 DROP 20 MINUTES BEFORE PROCEDURE
     Route: 047
  9. BENEFIBER [Concomitant]
  10. DOCUSATE SODIUM [Concomitant]
  11. GABAPENTIN [Concomitant]
  12. LEXAPRO [Concomitant]
  13. NEXIUM [Concomitant]
  14. SEROQUEL [Concomitant]
  15. TOPIRAMATE [Concomitant]
  16. VITAMIN D3 [Concomitant]

REACTIONS (9)
  - Macular oedema [Unknown]
  - Upper respiratory tract congestion [Unknown]
  - Coordination abnormal [Unknown]
  - Headache [Unknown]
  - Asthenia [Unknown]
  - Depression [Unknown]
  - Memory impairment [Unknown]
  - Macular degeneration [Unknown]
  - Retinal scar [Unknown]
